FAERS Safety Report 8599120 (Version 3)
Quarter: 2014Q1

REPORT INFORMATION
  Report Type: Spontaneous
  Country: US (occurrence: US)
  Receive Date: 20120605
  Receipt Date: 20140127
  Transmission Date: 20141002
  Serious: Yes (Hospitalization)
  Sender: FDA-Public Use
  Company Number: US-ASTRAZENECA-2012SE34967

PATIENT
  Age: 53 Year
  Sex: Female
  Weight: 68 kg

DRUGS (8)
  1. NEXIUM [Suspect]
     Indication: GASTROOESOPHAGEAL REFLUX DISEASE
     Dosage: TWICE DAILY
     Route: 048
     Dates: end: 2012
  2. ZANTAC [Concomitant]
  3. TUMS [Concomitant]
  4. ALKA-SELTZER [Concomitant]
  5. MILK OF MAGNESIA [Concomitant]
  6. GAVISCON [Concomitant]
  7. PEPTO-BISMOL [Concomitant]
  8. MYLANTA [Concomitant]

REACTIONS (19)
  - Renal disorder [Unknown]
  - Blood potassium abnormal [Unknown]
  - Mental disorder [Unknown]
  - Hallucination, auditory [Unknown]
  - Osteoporosis [Unknown]
  - Multiple fractures [Unknown]
  - Intervertebral disc degeneration [Unknown]
  - Gastrointestinal disorder [Unknown]
  - Overdose [Unknown]
  - Anxiety [Unknown]
  - Pain in extremity [Unknown]
  - Neck pain [Unknown]
  - Asthenia [Unknown]
  - Fatigue [Unknown]
  - Radiculitis cervical [Unknown]
  - Lumbar radiculopathy [Unknown]
  - Intervertebral disc displacement [Unknown]
  - Arthralgia [Unknown]
  - Nausea [Unknown]
